FAERS Safety Report 17652298 (Version 2)
Quarter: 2020Q2

REPORT INFORMATION
  Report Type: Spontaneous
  Country: DE (occurrence: DE)
  Receive Date: 20200409
  Receipt Date: 20200416
  Transmission Date: 20200713
  Serious: Yes (Life-Threatening, Hospitalization)
  Sender: FDA-Public Use
  Company Number: DE-TEVA-2020-DE-1219407

PATIENT
  Age: 16 Year
  Sex: Male

DRUGS (1)
  1. AMIODARONE [Suspect]
     Active Substance: AMIODARONE
     Indication: VENTRICULAR TACHYCARDIA
     Route: 050

REACTIONS (4)
  - Loss of consciousness [Recovering/Resolving]
  - Haemodynamic instability [Recovering/Resolving]
  - Bradycardia [Recovered/Resolved]
  - Ejection fraction decreased [Recovering/Resolving]
